FAERS Safety Report 12774297 (Version 1)
Quarter: 2016Q3

REPORT INFORMATION
  Report Type: Spontaneous
  Country: US (occurrence: US)
  Receive Date: 20160923
  Receipt Date: 20160923
  Transmission Date: 20161109
  Serious: No
  Sender: FDA-Public Use
  Company Number: US-PFIZER INC-2016442523

PATIENT
  Age: 90 Year
  Sex: Female
  Weight: 58.97 kg

DRUGS (4)
  1. ELIQUIS [Concomitant]
     Active Substance: APIXABAN
     Indication: BLOOD VISCOSITY ABNORMAL
     Dosage: 2.5 MG, 2 OF THEM A DAY
  2. FLECTOR [Suspect]
     Active Substance: DICLOFENAC EPOLAMINE
     Indication: BURSITIS
  3. ELIQUIS [Concomitant]
     Active Substance: APIXABAN
     Indication: CARDIAC FIBRILLATION
  4. FLECTOR [Suspect]
     Active Substance: DICLOFENAC EPOLAMINE
     Indication: ARTHRITIS
     Dosage: UNK
     Dates: start: 201609, end: 201609

REACTIONS (3)
  - Rash macular [Not Recovered/Not Resolved]
  - Drug ineffective [Not Recovered/Not Resolved]
  - Product use issue [Unknown]

NARRATIVE: CASE EVENT DATE: 201609
